FAERS Safety Report 23969836 (Version 2)
Quarter: 2024Q4

REPORT INFORMATION
  Report Type: Spontaneous
  Country: FR (occurrence: FR)
  Receive Date: 20240613
  Receipt Date: 20241114
  Transmission Date: 20250115
  Serious: Yes (Other)
  Sender: ALEXION PHARMACEUTICALS
  Company Number: None

PATIENT
  Age: 60 Year
  Weight: 90 kg

DRUGS (5)
  1. IMFINZI [Suspect]
     Active Substance: DURVALUMAB
     Indication: Cholangiocarcinoma
     Dosage: UNK
  2. FENTANYL [Concomitant]
     Active Substance: FENTANYL
     Dosage: UNK MICROGRAM PER LITRE
  3. Oxinorm [Concomitant]
     Dosage: 5 MILLIGRAM, IF NEEDED
  4. ACETAMINOPHEN [Concomitant]
     Active Substance: ACETAMINOPHEN
  5. URSODIOL [Concomitant]
     Active Substance: URSODIOL
     Dosage: UNK

REACTIONS (4)
  - Aplasia pure red cell [Not Recovered/Not Resolved]
  - Normocytic anaemia [Unknown]
  - Asthenia [Unknown]
  - Anaemia [Unknown]
